APPROVED DRUG PRODUCT: RADICAVA ORS
Active Ingredient: EDARAVONE
Strength: 105MG/5ML
Dosage Form/Route: SUSPENSION;ORAL
Application: N215446 | Product #001
Applicant: K.K. BCJ-94
Approved: May 12, 2022 | RLD: Yes | RS: Yes | Type: RX

PATENTS:
Patent 12310946 | Expires: Nov 12, 2041
Patent 12527769 | Expires: Nov 12, 2041
Patent 12194025 | Expires: Nov 12, 2041
Patent 11478450 | Expires: Nov 1, 2039
Patent 12478611 | Expires: Nov 12, 2041
Patent 10987341 | Expires: Nov 1, 2039
Patent 12285409 | Expires: Nov 1, 2039
Patent 11241416 | Expires: Nov 1, 2039
Patent 11957660 | Expires: Nov 1, 2039
Patent 11826352 | Expires: Nov 1, 2039

EXCLUSIVITY:
Code: ODE-144 | Date: May 12, 2029